FAERS Safety Report 7040981-3 (Version None)
Quarter: 2010Q4

REPORT INFORMATION
  Report Type: 
  Country: None (occurrence: None)
  Receive Date: 20101013
  Receipt Date: 20101004
  Transmission Date: 20110411
  Serious: Yes (Hospitalization)
  Sender: FDA-Public Use
  Company Number: IT-ASTRAZENECA-2010SE46853

PATIENT
  Age: 23429 Day
  Sex: Female

DRUGS (4)
  1. SEROQUEL [Suspect]
     Indication: PSYCHOTIC DISORDER
     Route: 048
     Dates: start: 20061201, end: 20091201
  2. LORAZEPAM [Concomitant]
  3. HALOPERIDOL [Concomitant]
  4. NOPRON [Concomitant]

REACTIONS (2)
  - DISTURBANCE IN ATTENTION [None]
  - HYPONATRAEMIA [None]
